FAERS Safety Report 20081516 (Version 1)
Quarter: 2021Q4

REPORT INFORMATION
  Report Type: Spontaneous
  Country: SE (occurrence: SE)
  Receive Date: 20211117
  Receipt Date: 20211117
  Transmission Date: 20220303
  Serious: Yes (Death)
  Sender: FDA-Public Use
  Company Number: None

PATIENT
  Age: 76 Year
  Sex: Male
  Weight: 77 kg

DRUGS (2)
  1. KEYTRUDA [Suspect]
     Active Substance: PEMBROLIZUMAB
     Indication: Thymoma
     Dosage: 200 MILLIGRAM, Q3W, 25 MG/ML, FORMULATION : CONCENTRATE FOR SOLUTION FOR INFUSION, LOT#:MISSING
     Route: 042
     Dates: start: 20201113, end: 20210415
  2. KEYTRUDA [Suspect]
     Active Substance: PEMBROLIZUMAB
     Dosage: 400 MILLIGRAM, EVERY 6 WEEKS, 25 MG/ML, FORMULATION : CONCENTRATE FOR SOLUTION FOR INFUSION, LOT#:MI
     Route: 042
     Dates: start: 20200416, end: 20210618

REACTIONS (1)
  - Hepatitis [Fatal]

NARRATIVE: CASE EVENT DATE: 20210806
